FAERS Safety Report 10947319 (Version 2)
Quarter: 2015Q2

REPORT INFORMATION
  Report Type: Spontaneous
  Country: US (occurrence: US)
  Receive Date: 20150323
  Receipt Date: 20150423
  Transmission Date: 20150821
  Serious: No
  Sender: FDA-Public Use
  Company Number: US-B.I. PHARMACEUTICALS,INC./RIDGEFIELD-2015-BI-12693BP

PATIENT
  Age: 76 Year
  Sex: Male

DRUGS (17)
  1. MIRAPEX [Suspect]
     Active Substance: PRAMIPEXOLE DIHYDROCHLORIDE
     Dosage: 2.25 MG
     Route: 048
     Dates: start: 2014, end: 20141125
  2. DONEPEZIL [Suspect]
     Active Substance: DONEPEZIL
     Dosage: 15 MG
     Route: 048
     Dates: start: 20140805
  3. DONEPEZIL [Suspect]
     Active Substance: DONEPEZIL
     Dosage: 10 MG
     Route: 048
     Dates: start: 20150113
  4. TAMSULOSIN HYDROCHLORIDE. [Concomitant]
     Active Substance: TAMSULOSIN HYDROCHLORIDE
     Indication: PARKINSON^S DISEASE
     Dosage: 0.6 MG
     Route: 065
  5. NEUPRO [Concomitant]
     Active Substance: ROTIGOTINE
     Indication: PRODUCT USED FOR UNKNOWN INDICATION
     Dosage: 4 MG
     Route: 062
     Dates: start: 20141125
  6. CITALOPRAM HYDROBROMIDE. [Concomitant]
     Active Substance: CITALOPRAM HYDROBROMIDE
     Indication: DEPRESSION
     Dosage: 10 MG
     Route: 048
  7. NORTRIPTYLINE [Concomitant]
     Active Substance: NORTRIPTYLINE
     Indication: PRODUCT USED FOR UNKNOWN INDICATION
     Dosage: 50 MG
     Route: 065
  8. MIRAPEX [Suspect]
     Active Substance: PRAMIPEXOLE DIHYDROCHLORIDE
     Indication: PARKINSON^S DISEASE
     Dosage: 1.5 MG
     Route: 048
     Dates: start: 201401, end: 2014
  9. DONEPEZIL [Suspect]
     Active Substance: DONEPEZIL
     Dosage: 20 MG
     Route: 048
     Dates: start: 201408, end: 20150112
  10. VITAMIN D3 [Concomitant]
     Active Substance: CHOLECALCIFEROL
     Indication: PRODUCT USED FOR UNKNOWN INDICATION
     Dosage: 800 U
     Route: 065
  11. DONEPEZIL [Suspect]
     Active Substance: DONEPEZIL
     Indication: AMNESIA
     Dosage: 10 MG
     Route: 048
     Dates: start: 20140716, end: 20140804
  12. NEUPRO [Concomitant]
     Active Substance: ROTIGOTINE
     Dosage: 6 MG
     Route: 062
     Dates: start: 2014, end: 20150113
  13. CARBIDOPA- LEVODOPA-ENTACAPONE [Concomitant]
     Indication: DEMENTIA
     Dosage: MULTIPLE DOSES
     Route: 048
     Dates: start: 2014
  14. CALCIUM [Concomitant]
     Active Substance: CALCIUM
     Indication: PRODUCT USED FOR UNKNOWN INDICATION
     Dosage: 600 MG
     Route: 065
  15. FOLIC ACID. [Concomitant]
     Active Substance: FOLIC ACID
     Indication: PRODUCT USED FOR UNKNOWN INDICATION
     Dosage: 800 MG
     Route: 065
  16. MIRAPEX [Suspect]
     Active Substance: PRAMIPEXOLE DIHYDROCHLORIDE
     Dosage: 1.5 MG
     Route: 048
     Dates: start: 20150113
  17. DONEPEZIL [Suspect]
     Active Substance: DONEPEZIL
     Indication: DEMENTIA
     Dosage: 5 MG
     Route: 048
     Dates: start: 20140617, end: 20140715

REACTIONS (1)
  - Mania [Not Recovered/Not Resolved]

NARRATIVE: CASE EVENT DATE: 201412
